FAERS Safety Report 20503838 (Version 14)
Quarter: 2023Q2

REPORT INFORMATION
  Report Type: Report from Study
  Country: CA (occurrence: CA)
  Receive Date: 20220222
  Receipt Date: 20230517
  Transmission Date: 20230721
  Serious: Yes (Death, Other)
  Sender: FDA-Public Use
  Company Number: CA-OTSUKA-2022_006148

PATIENT
  Age: 75 Year
  Sex: Male

DRUGS (4)
  1. CEDAZURIDINE\DECITABINE [Suspect]
     Active Substance: CEDAZURIDINE\DECITABINE
     Indication: Myelodysplastic syndrome
     Dosage: UNK
     Route: 065
     Dates: start: 20211129
  2. CEDAZURIDINE\DECITABINE [Suspect]
     Active Substance: CEDAZURIDINE\DECITABINE
     Dosage: QD (3 PILLS PER CYCLE)
     Route: 065
  3. CEDAZURIDINE\DECITABINE [Suspect]
     Active Substance: CEDAZURIDINE\DECITABINE
     Dosage: ON THREE TABLETS
     Route: 065
     Dates: start: 20221129
  4. CEDAZURIDINE\DECITABINE [Suspect]
     Active Substance: CEDAZURIDINE\DECITABINE
     Dosage: 3 PILLS BY CYCLE ON ALTERNATIVE DAYS
     Route: 065

REACTIONS (11)
  - Death [Fatal]
  - Transfusion [Unknown]
  - Loss of consciousness [Unknown]
  - Radiotherapy [Unknown]
  - Haemoglobin abnormal [Unknown]
  - Full blood count abnormal [Unknown]
  - Dizziness [Not Recovered/Not Resolved]
  - Fatigue [Recovering/Resolving]
  - Platelet count decreased [Unknown]
  - White blood cell count decreased [Unknown]
  - Product use issue [Unknown]

NARRATIVE: CASE EVENT DATE: 20211129
